FAERS Safety Report 8829798 (Version 1)
Quarter: 2012Q4

REPORT INFORMATION
  Report Type: Spontaneous
  Country: US (occurrence: None)
  Receive Date: 20121005
  Receipt Date: 20121005
  Transmission Date: 20130627
  Serious: Yes (Other)
  Sender: FDA-Public Use
  Company Number: None

PATIENT
  Age: 47 Year
  Sex: Female
  Weight: 87.5 kg

DRUGS (1)
  1. CASPOFUNGIN [Suspect]
     Indication: PULMONARY ASPERGILLOSIS
     Dates: start: 20120906, end: 20121003

REACTIONS (3)
  - Blood alkaline phosphatase increased [None]
  - Aspartate aminotransferase increased [None]
  - Alanine aminotransferase increased [None]
